FAERS Safety Report 16202681 (Version 4)
Quarter: 2019Q3

REPORT INFORMATION
  Report Type: Spontaneous
  Country: US (occurrence: US)
  Receive Date: 20190416
  Receipt Date: 20190905
  Transmission Date: 20191004
  Serious: Yes (Hospitalization, Other)
  Sender: FDA-Public Use
  Company Number: US-PFIZER INC-2019158902

PATIENT
  Age: 53 Year
  Sex: Female
  Weight: 120 kg

DRUGS (1)
  1. LYRICA [Suspect]
     Active Substance: PREGABALIN
     Indication: FIBROMYALGIA
     Dosage: 200 MG, 3X/DAY
     Route: 048

REACTIONS (9)
  - Blood pressure abnormal [Unknown]
  - Sleep disorder [Unknown]
  - Myocardial infarction [Recovered/Resolved with Sequelae]
  - Off label use [Unknown]
  - Depression [Unknown]
  - Road traffic accident [Unknown]
  - Body height decreased [Unknown]
  - Obesity [Unknown]
  - Thyroid disorder [Unknown]

NARRATIVE: CASE EVENT DATE: 20190117
